FAERS Safety Report 15992546 (Version 1)
Quarter: 2019Q1

REPORT INFORMATION
  Report Type: Spontaneous
  Country: ES (occurrence: ES)
  Receive Date: 20190221
  Receipt Date: 20190221
  Transmission Date: 20190418
  Serious: Yes (Other)
  Sender: FDA-Public Use
  Company Number: ES-EISAI MEDICAL RESEARCH-EC-2018-047639

PATIENT
  Sex: Female

DRUGS (1)
  1. PERAMPANEL [Suspect]
     Active Substance: PERAMPANEL
     Indication: STATUS EPILEPTICUS
     Dosage: UNKNOWN
     Route: 065
     Dates: start: 2018

REACTIONS (2)
  - Exposure during pregnancy [Recovered/Resolved]
  - Abortion spontaneous [Recovered/Resolved]
